FAERS Safety Report 7589059-0 (Version None)
Quarter: 2011Q3

REPORT INFORMATION
  Report Type: 
  Country: None (occurrence: None)
  Receive Date: 20110705
  Receipt Date: 20110610
  Transmission Date: 20111222
  Serious: Yes (Hospitalization, Other)
  Sender: FDA-Public Use
  Company Number: US-BAYER-2011-024458

PATIENT
  Age: 17 Year
  Sex: Female
  Weight: 77.098 kg

DRUGS (9)
  1. YAZ [Suspect]
     Indication: CONTRACEPTION
  2. YASMIN [Suspect]
     Indication: ACNE
     Dosage: UNK
     Dates: start: 20090108
  3. PLAN B [Concomitant]
     Dosage: 0.75 MG, UNK
     Route: 048
     Dates: start: 20090406
  4. YASMIN [Suspect]
     Indication: CONTRACEPTION
  5. PLAN B [Concomitant]
     Dosage: 0.75 MG, UNK
     Route: 048
     Dates: start: 20090108
  6. YAZ [Suspect]
     Indication: ACNE
     Dosage: UNK
     Dates: start: 20090108
  7. DROSPIRENONE AND ETHINYL ESTRADIOL [Suspect]
     Indication: ACNE
     Dosage: UNK
     Dates: start: 20090108
  8. DROSPIRENONE AND ETHINYL ESTRADIOL [Suspect]
     Indication: CONTRACEPTION
  9. PLAN B [Concomitant]
     Dosage: 0.75 MG, UNK
     Route: 048
     Dates: start: 20090519

REACTIONS (6)
  - BILE DUCT STONE [None]
  - INJURY [None]
  - PAIN [None]
  - PANCREATITIS [None]
  - CHOLECYSTITIS CHRONIC [None]
  - CHOLELITHIASIS [None]
